FAERS Safety Report 11898129 (Version 1)
Quarter: 2016Q1

REPORT INFORMATION
  Report Type: Spontaneous
  Country: HU (occurrence: HU)
  Receive Date: 20160108
  Receipt Date: 20160108
  Transmission Date: 20160526
  Serious: Yes (Death)
  Sender: FDA-Public Use
  Company Number: HU-TEVA-622829ACC

PATIENT
  Age: 34 Year
  Sex: Female

DRUGS (7)
  1. MEDROL [Concomitant]
     Active Substance: METHYLPREDNISOLONE
  2. FUROSEMIDE. [Concomitant]
     Active Substance: FUROSEMIDE
  3. POTASSIUM [Concomitant]
     Active Substance: POTASSIUM
  4. CONTRAMAL [Suspect]
     Active Substance: TRAMADOL HYDROCHLORIDE
     Route: 042
     Dates: start: 20140823, end: 20140823
  5. IMURAN [Concomitant]
     Active Substance: AZATHIOPRINE
  6. URSOFALK [Concomitant]
     Active Substance: URSODIOL
  7. CONTROLOC [Concomitant]
     Active Substance: PANTOPRAZOLE SODIUM

REACTIONS (2)
  - Drug hypersensitivity [Fatal]
  - Septic shock [Fatal]

NARRATIVE: CASE EVENT DATE: 20140823
